FAERS Safety Report 21648624 (Version 1)
Quarter: 2022Q4

REPORT INFORMATION
  Report Type: Report from Study
  Country: US (occurrence: US)
  Receive Date: 20221128
  Receipt Date: 20221128
  Transmission Date: 20230113
  Serious: No
  Sender: FDA-Public Use
  Company Number: US-ABBVIE-4183548

PATIENT
  Sex: Female

DRUGS (7)
  1. HUMIRA [Suspect]
     Active Substance: ADALIMUMAB
     Indication: Psoriatic arthropathy
     Route: 058
  2. OMEPRAZOLE CPD 40MG [Concomitant]
     Indication: Product used for unknown indication
  3. ARAVA TAB 20MG [Concomitant]
     Indication: Product used for unknown indication
     Route: 048
  4. LOSARTAN POT TAB 100MG [Concomitant]
     Indication: Product used for unknown indication
     Route: 048
  5. SERTRALINE H CAP 200MG [Concomitant]
     Indication: Product used for unknown indication
     Route: 048
  6. LIPITOR TAB 80MG [Concomitant]
     Indication: Product used for unknown indication
     Route: 048
  7. GABAPENTIN TAB 800MG [Concomitant]
     Indication: Product used for unknown indication
     Route: 048

REACTIONS (1)
  - Adverse drug reaction [Unknown]
